FAERS Safety Report 8017750-0 (Version None)
Quarter: 2012Q1

REPORT INFORMATION
  Report Type: 
  Country: None (occurrence: None)
  Receive Date: 20120103
  Receipt Date: 20111228
  Transmission Date: 20120608
  Serious: No
  Sender: FDA-Public Use
  Company Number: US-PFIZER INC-2011293608

PATIENT
  Sex: Female

DRUGS (15)
  1. HYDROCHLOROTHIAZIDE [Concomitant]
     Indication: DIURETIC THERAPY
     Dosage: 100/25 MG
  2. NEURONTIN [Suspect]
     Indication: MYALGIA
     Dosage: 300 MG, 2X/DAY
     Dates: start: 20110101, end: 20110101
  3. RED YEAST RICE [Concomitant]
     Indication: BLOOD CHOLESTEROL INCREASED
     Dosage: 1200 MG, 2X/DAY
  4. VOLTAREN [Concomitant]
     Indication: ARTHRALGIA
     Dosage: 75 MG,DAILY
     Route: 048
  5. LOPRESSOR [Concomitant]
     Indication: SURGERY
     Dosage: 100 MG, 2X/DAY
  6. CALCIUM [Concomitant]
     Indication: OSTEOPOROSIS
     Dosage: UNKNOWN DOSE TWO TIMES A DAY
  7. MULTI-VITAMINS [Concomitant]
     Dosage: UNK
  8. ASPIRIN [Concomitant]
     Dosage: 325 MG, DAILY
  9. LASIX [Concomitant]
     Dosage: 80 MG, AS NEEDED
     Route: 048
  10. WELCHOL [Concomitant]
     Indication: BLOOD CHOLESTEROL INCREASED
     Dosage: FOUR TABLETS TWO TIMES A DAY
     Route: 048
  11. FISH OIL [Concomitant]
     Dosage: 1000 MG, 2X/DAY
  12. NEURONTIN [Suspect]
     Indication: PAIN IN EXTREMITY
     Dosage: 300 MG, 3X/DAY
     Route: 048
     Dates: start: 20110601
  13. CELEXA [Concomitant]
     Indication: DEPRESSION
     Dosage: 30 MG,DAILY
     Route: 048
  14. IMDUR [Concomitant]
     Indication: ANGINA PECTORIS
     Dosage: 30 MG, 2X/DAY
     Route: 048
  15. ZETIA [Concomitant]
     Indication: BLOOD CHOLESTEROL INCREASED
     Dosage: 10 MG,DAILY
     Route: 048

REACTIONS (1)
  - DRUG EFFECT DECREASED [None]
